FAERS Safety Report 9639167 (Version 1)
Quarter: 2013Q4

REPORT INFORMATION
  Report Type: Spontaneous
  Country: US (occurrence: US)
  Receive Date: 20131022
  Receipt Date: 20131022
  Transmission Date: 20140711
  Serious: Yes (Hospitalization, Other)
  Sender: FDA-Public Use
  Company Number: PHHY2013US115889

PATIENT
  Age: 21 Year
  Sex: Male

DRUGS (3)
  1. CITALOPRAM [Suspect]
     Dosage: 11.6 G, UNK
  2. OLANZAPINE [Suspect]
     Dosage: 600 MG, UNK
  3. CLONAZEPAM [Concomitant]
     Dosage: 5 MG, UNK

REACTIONS (8)
  - Cardiotoxicity [Unknown]
  - Hypotension [Unknown]
  - Bradycardia [Unknown]
  - Rales [Unknown]
  - Miosis [Recovered/Resolved]
  - Convulsion [Recovered/Resolved]
  - Unresponsive to stimuli [Recovered/Resolved]
  - Overdose [Unknown]
